FAERS Safety Report 7248555-6 (Version None)
Quarter: 2011Q1

REPORT INFORMATION
  Report Type: 
  Country: None (occurrence: None)
  Receive Date: 20110128
  Receipt Date: 20110121
  Transmission Date: 20110831
  Serious: Yes (Hospitalization, Other)
  Sender: FDA-Public Use
  Company Number: US-ASTRAZENECA-2008UW10881

PATIENT
  Age: 432 Month
  Sex: Female
  Weight: 124.3 kg

DRUGS (27)
  1. SEROQUEL [Suspect]
     Route: 048
     Dates: start: 20020206
  2. ZYPREXA [Concomitant]
     Dates: start: 20010101, end: 20030101
  3. DEPAKOTE ER [Concomitant]
     Dates: start: 20020206
  4. CLOZARIL [Concomitant]
     Dates: start: 20040428
  5. RISPERDAL [Concomitant]
     Dates: start: 20010601, end: 20031029
  6. ZYPREXA [Concomitant]
     Dates: start: 20010101, end: 20030101
  7. ZYPREXA [Concomitant]
     Dates: start: 20010101, end: 20030101
  8. JANUVIA [Concomitant]
     Dates: start: 20071020
  9. MAALOX PLUS [Concomitant]
     Indication: DYSPEPSIA
     Dosage: 30 ML Q4H PRN
     Route: 048
     Dates: start: 20020206
  10. SEROQUEL [Suspect]
     Route: 048
     Dates: start: 20020204, end: 20030614
  11. METOPROLOL [Concomitant]
     Indication: HEART RATE
     Dates: start: 20071024
  12. RISPERDAL [Concomitant]
     Dates: start: 20031113, end: 20040331
  13. ZOLPIDEM TARTRATE [Concomitant]
     Route: 048
     Dates: start: 20020206
  14. DEPAKOTE ER [Concomitant]
     Dosage: 1000 MG USE TWO TIMES 500 MG DOSE
     Route: 048
     Dates: start: 20020206
  15. SEROQUEL [Suspect]
     Indication: DEPRESSION
     Route: 048
     Dates: start: 20020204, end: 20030614
  16. TENORMIN [Concomitant]
     Dates: start: 20071020
  17. GLUCOPHAGE [Concomitant]
     Dates: start: 20071020
  18. TYLENOL-500 [Concomitant]
     Indication: PYREXIA
     Dosage: 650 MG Q4H PRN
     Route: 048
     Dates: start: 20020206
  19. TYLENOL-500 [Concomitant]
     Indication: PAIN
     Dosage: 650 MG Q4H PRN
     Route: 048
     Dates: start: 20020206
  20. SEROQUEL [Suspect]
     Route: 048
     Dates: start: 20020206
  21. ABILIFY [Concomitant]
     Dates: start: 20030114, end: 20030508
  22. GEODON [Concomitant]
     Dates: start: 20020123
  23. RISPERDAL [Concomitant]
     Dates: start: 20040126, end: 20040225
  24. ZOLPIDEM TARTRATE [Concomitant]
     Indication: SLEEP DISORDER
     Dates: start: 20020206
  25. SEROQUEL [Suspect]
     Indication: PSYCHOTIC DISORDER
     Route: 048
     Dates: start: 20020204, end: 20030614
  26. SEROQUEL [Suspect]
     Route: 048
     Dates: start: 20020204, end: 20030614
  27. DITROPAN [Concomitant]
     Dates: start: 20071010

REACTIONS (9)
  - TYPE 2 DIABETES MELLITUS [None]
  - SCHIZOAFFECTIVE DISORDER [None]
  - NEUROPATHY PERIPHERAL [None]
  - HYPERTENSION [None]
  - NECROTISING FASCIITIS [None]
  - CELLULITIS [None]
  - MUSCULOSKELETAL PAIN [None]
  - CHEST PAIN [None]
  - OBESITY [None]
